FAERS Safety Report 10094404 (Version 2)
Quarter: 2014Q2

REPORT INFORMATION
  Report Type: Spontaneous
  Country: US (occurrence: US)
  Receive Date: 20140422
  Receipt Date: 20140502
  Transmission Date: 20141212
  Serious: No
  Sender: FDA-Public Use
  Company Number: US-JNJFOC-20140407614

PATIENT
  Age: 39 Year
  Sex: Male
  Weight: 136.08 kg

DRUGS (2)
  1. DURAGESIC [Suspect]
     Indication: BACK PAIN
     Route: 062
     Dates: start: 20140407
  2. MORPHINE [Concomitant]
     Indication: BACK PAIN
     Route: 048
     Dates: start: 2011

REACTIONS (6)
  - Withdrawal syndrome [Unknown]
  - Muscle spasms [Unknown]
  - Product quality issue [Unknown]
  - Pain [Not Recovered/Not Resolved]
  - Drug dose omission [Unknown]
  - Abdominal pain upper [Unknown]
